FAERS Safety Report 16792170 (Version 2)
Quarter: 2021Q2

REPORT INFORMATION
  Report Type: Spontaneous
  Country: US (occurrence: US)
  Receive Date: 20190910
  Receipt Date: 20210422
  Transmission Date: 20210716
  Serious: No
  Sender: FDA-Public Use
  Company Number: US-TEVA-2019-US-1106308

PATIENT
  Age: 19 Year
  Sex: Male

DRUGS (1)
  1. CLARAVIS [Suspect]
     Active Substance: ISOTRETINOIN
     Indication: PRODUCT USED FOR UNKNOWN INDICATION
     Route: 065
     Dates: start: 20181128

REACTIONS (10)
  - Irritability [Unknown]
  - Epistaxis [Unknown]
  - Headache [Unknown]
  - Hypersomnia [Unknown]
  - Affective disorder [Unknown]
  - Arthralgia [Unknown]
  - Back pain [Unknown]
  - Bone pain [Unknown]
  - Feeling abnormal [Unknown]
  - Depression [Unknown]

NARRATIVE: CASE EVENT DATE: 2018
